FAERS Safety Report 9937779 (Version 1)
Quarter: 2014Q1

REPORT INFORMATION
  Report Type: Spontaneous
  Country: US (occurrence: US)
  Receive Date: 20140303
  Receipt Date: 20140303
  Transmission Date: 20141002
  Serious: No
  Sender: FDA-Public Use
  Company Number: US-BIOGENIDEC-2014BI016115

PATIENT
  Age: 55 Year
  Sex: Female

DRUGS (13)
  1. TECFIDERA [Suspect]
     Indication: MULTIPLE SCLEROSIS
     Route: 048
     Dates: start: 20140208
  2. DANTROLENE SODIUM [Concomitant]
  3. DESMOPRESSIN ACETATE [Concomitant]
  4. ECOTRIN [Concomitant]
  5. GABAPENTIN [Concomitant]
  6. LISINOPRIL- HYDROCHLORO [Concomitant]
  7. LOPRESSOR HCT [Concomitant]
  8. LOSARTAN POTASSIUM [Concomitant]
  9. MELOXICAM [Concomitant]
  10. METHYLPHENIDATE [Concomitant]
  11. PIOGLITAZONE [Concomitant]
  12. VESICARE [Concomitant]
  13. ZANTAC [Concomitant]

REACTIONS (2)
  - Tremor [Not Recovered/Not Resolved]
  - Fatigue [Not Recovered/Not Resolved]
